FAERS Safety Report 6571681-1 (Version None)
Quarter: 2010Q1

REPORT INFORMATION
  Report Type: 
  Country: None (occurrence: None)
  Receive Date: 20100205
  Receipt Date: 20100129
  Transmission Date: 20100710
  Serious: Yes (Other)
  Sender: FDA-Public Use
  Company Number: PHHY2009BR46516

PATIENT
  Sex: Male
  Weight: 70 kg

DRUGS (3)
  1. EXELON [Suspect]
     Indication: DEMENTIA ALZHEIMER'S TYPE
     Dosage: 1.5 MG, UNK
     Dates: start: 20070101
  2. EXELON [Suspect]
     Dosage: 3 MG, UNK
     Route: 048
     Dates: start: 20070101
  3. RISPERIDONE [Concomitant]

REACTIONS (6)
  - DECREASED APPETITE [None]
  - DISORIENTATION [None]
  - ERUCTATION [None]
  - FEELING ABNORMAL [None]
  - FLATULENCE [None]
  - HALLUCINATION [None]
